FAERS Safety Report 7734734-8 (Version None)
Quarter: 2011Q3

REPORT INFORMATION
  Report Type: 
  Country: None (occurrence: None)
  Receive Date: 20110907
  Receipt Date: 20110826
  Transmission Date: 20111222
  Serious: Yes (Hospitalization)
  Sender: FDA-Public Use
  Company Number: US-ELI_LILLY_AND_COMPANY-US201108009437

PATIENT
  Sex: Male

DRUGS (4)
  1. ZANAFLEX [Concomitant]
     Dosage: UNK, UNKNOWN
     Route: 065
  2. KLONOPIN [Concomitant]
     Dosage: UNK, UNKNOWN
     Route: 065
  3. ZYPREXA RELPREVV [Suspect]
     Indication: SCHIZOAFFECTIVE DISORDER
     Dosage: 105 MG, UNK
     Route: 030
     Dates: start: 20110701, end: 20110701
  4. IBUPROFEN [Concomitant]
     Dosage: UNK, UNKNOWN
     Route: 065

REACTIONS (1)
  - INJECTION SITE ABSCESS [None]
